FAERS Safety Report 7657093-8 (Version None)
Quarter: 2011Q3

REPORT INFORMATION
  Report Type: 
  Country: None (occurrence: None)
  Receive Date: 20110804
  Receipt Date: 20101012
  Transmission Date: 20111222
  Serious: No
  Sender: FDA-Public Use
  Company Number: US-GLAXOSMITHKLINE-A0886124A

PATIENT
  Age: 50 Year
  Sex: Female

DRUGS (3)
  1. ZOLOFT [Suspect]
  2. PROVENTIL [Suspect]
  3. ADVAIR DISKUS 100/50 [Suspect]
     Indication: ASTHMA
     Dosage: 2PUFF PER DAY
     Route: 055

REACTIONS (1)
  - TREMOR [None]
